FAERS Safety Report 8961279 (Version 3)
Quarter: 2013Q2

REPORT INFORMATION
  Report Type: Report from Study
  Country: DE (occurrence: DE)
  Receive Date: 20121213
  Receipt Date: 20130409
  Transmission Date: 20140414
  Serious: Yes (Hospitalization, Other)
  Sender: FDA-Public Use
  Company Number: DE-ABBOTT-12P-062-1019756-00

PATIENT
  Age: 74 Year
  Sex: Female

DRUGS (3)
  1. HUMIRA [Suspect]
     Indication: RHEUMATOID ARTHRITIS
     Route: 058
     Dates: start: 20120913, end: 20130311
  2. LISINOPRIL [Concomitant]
     Indication: HYPERTENSION
  3. KATADOLON [Concomitant]
     Indication: PRODUCT USED FOR UNKNOWN INDICATION
     Dates: start: 20121220

REACTIONS (3)
  - Osteoarthritis [Not Recovered/Not Resolved]
  - Deep vein thrombosis [Recovered/Resolved]
  - Pain in extremity [Unknown]
